FAERS Safety Report 9071388 (Version 2)
Quarter: 2013Q4

REPORT INFORMATION
  Report Type: Spontaneous
  Country: US (occurrence: US)
  Receive Date: 20130129
  Receipt Date: 20131109
  Transmission Date: 20140711
  Serious: No
  Sender: FDA-Public Use
  Company Number: US-B.I. PHARMACEUTICALS,INC./RIDGEFIELD-2013-BI-00424BP

PATIENT
  Sex: Female
  Weight: 57 kg

DRUGS (10)
  1. PRADAXA [Suspect]
     Indication: ATRIAL FIBRILLATION
     Dosage: 300 MG
     Route: 048
     Dates: start: 2011
  2. MELATONIN [Concomitant]
     Indication: INSOMNIA
     Dosage: 3 MG
     Route: 048
  3. MULTIVITAMIN [Concomitant]
     Route: 048
  4. VITAMIN C [Concomitant]
     Dosage: 500 MG
     Route: 048
  5. PRAVASTATIN [Concomitant]
     Indication: BLOOD CHOLESTEROL INCREASED
     Dosage: 80 MG
     Route: 048
  6. EQUATE ALLERY RELIEF [Concomitant]
     Indication: HYPERSENSITIVITY
     Dosage: 10 MG
     Route: 048
  7. EQUATE FIBER THERAPY [Concomitant]
     Route: 048
  8. TAZTIA XT [Concomitant]
     Indication: HYPERTENSION
     Dosage: 480 MG
     Route: 048
     Dates: start: 2011
  9. CALCIUM + D [Concomitant]
     Dosage: 1200 MG
     Route: 048
  10. RECLAST [Concomitant]
     Indication: OSTEOPOROSIS
     Route: 042

REACTIONS (4)
  - Haemorrhage [Recovered/Resolved]
  - Laceration [Recovered/Resolved]
  - Contusion [Not Recovered/Not Resolved]
  - Product quality issue [Unknown]
